FAERS Safety Report 11114959 (Version 2)
Quarter: 2015Q2

REPORT INFORMATION
  Report Type: Report from Study
  Country: CZ (occurrence: CZ)
  Receive Date: 20150515
  Receipt Date: 20150602
  Transmission Date: 20150821
  Serious: Yes (Hospitalization)
  Sender: FDA-Public Use
  Company Number: CZ-BIOGENIDEC-2015BI059594

PATIENT
  Age: 30 Year
  Sex: Female
  Weight: 67 kg

DRUGS (5)
  1. THYROZOL [Concomitant]
     Active Substance: METHIMAZOLE
     Indication: BASEDOW^S DISEASE
     Route: 048
     Dates: start: 201403, end: 201406
  2. AVONEX [Suspect]
     Active Substance: INTERFERON BETA-1A
     Indication: MULTIPLE SCLEROSIS
     Route: 030
     Dates: start: 20141007, end: 20141106
  3. IBALGIN [Concomitant]
     Active Substance: IBUPROFEN
     Route: 048
  4. PARALEN [Concomitant]
     Active Substance: ACETAMINOPHEN
     Route: 048
  5. AVONEX [Suspect]
     Active Substance: INTERFERON BETA-1A
     Indication: MULTIPLE SCLEROSIS
     Route: 030
     Dates: start: 20111227, end: 20140818

REACTIONS (3)
  - Bone marrow failure [Recovered/Resolved]
  - Leukopenia [Recovered/Resolved]
  - Thyroid disorder [Unknown]

NARRATIVE: CASE EVENT DATE: 20140618
